FAERS Safety Report 8346857-3 (Version None)
Quarter: 2012Q2

REPORT INFORMATION
  Report Type: 
  Country: None (occurrence: None)
  Receive Date: 20120509
  Receipt Date: 20120503
  Transmission Date: 20120825
  Serious: Yes (Hospitalization)
  Sender: FDA-Public Use
  Company Number: SE-B.I. PHARMACEUTICALS,INC./RIDGEFIELD-2012-SW-00377SW

PATIENT
  Sex: Male

DRUGS (6)
  1. GLIPIZIDE [Concomitant]
  2. ISOPTIN SR [Concomitant]
  3. PRADAXA [Suspect]
     Indication: ATRIAL FIBRILLATION
     Dosage: 110 MG
     Route: 048
     Dates: start: 20120206, end: 20120321
  4. HYDROXOCOBALAMIN [Concomitant]
  5. EZETIMIBE [Concomitant]
  6. ATACAND [Concomitant]

REACTIONS (4)
  - BLOOD CREATININE INCREASED [None]
  - FATIGUE [None]
  - GENERAL PHYSICAL HEALTH DETERIORATION [None]
  - DYSPNOEA [None]
